FAERS Safety Report 9244853 (Version 1)
Quarter: 2013Q1

REPORT INFORMATION
  Report Type: Spontaneous
  Country: US (occurrence: None)
  Receive Date: 20121130
  Receipt Date: 20121130
  Transmission Date: 20140127
  Serious: Yes (Other)
  Sender: FDA-Public Use
  Company Number: 2012CP000110

PATIENT
  Sex: Male

DRUGS (1)
  1. OFIRMEV [Suspect]
     Dosage: ; IV

REACTIONS (6)
  - Angioedema [None]
  - Hypotension [None]
  - Erythema [None]
  - Rash [None]
  - Urticaria [None]
  - Hypersensitivity [None]
